FAERS Safety Report 12314230 (Version 1)
Quarter: 2016Q2

REPORT INFORMATION
  Report Type: Spontaneous
  Country: FR (occurrence: FR)
  Receive Date: 20160428
  Receipt Date: 20160428
  Transmission Date: 20160815
  Serious: Yes (Death)
  Sender: FDA-Public Use
  Company Number: FR-ASTRAZENECA-2016SE43958

PATIENT
  Age: 27904 Day
  Sex: Female

DRUGS (6)
  1. CRESTOR [Suspect]
     Active Substance: ROSUVASTATIN CALCIUM
     Route: 048
  2. LOPRESSOR [Concomitant]
     Active Substance: METOPROLOL TARTRATE
  3. FLECAINE [Concomitant]
     Active Substance: FLECAINIDE
     Dosage: LONG LASTING
  4. PREVISCAN [Interacting]
     Active Substance: FLUINDIONE
     Dosage: LONG LASTING
     Route: 048
  5. INEXIUM [Concomitant]
     Active Substance: ESOMEPRAZOLE
  6. IPERTEN [Concomitant]
     Active Substance: MANIDIPINE

REACTIONS (3)
  - Drug interaction [Fatal]
  - International normalised ratio increased [Fatal]
  - Haemorrhagic stroke [Fatal]

NARRATIVE: CASE EVENT DATE: 20160312
